FAERS Safety Report 12891494 (Version 1)
Quarter: 2016Q4

REPORT INFORMATION
  Report Type: Spontaneous
  Country: FR (occurrence: FR)
  Receive Date: 20161028
  Receipt Date: 20161028
  Transmission Date: 20170207
  Serious: Yes (Death)
  Sender: FDA-Public Use
  Company Number: FR-BAXTER-2016BAX053779

PATIENT
  Sex: Female

DRUGS (1)
  1. CHLORURE DE SODIUM 0.9% VIAFLO, SOLUTION POUR PERFUSION [Suspect]
     Active Substance: SODIUM CHLORIDE
     Indication: FLUID REPLACEMENT
     Route: 058
     Dates: start: 201609, end: 201609

REACTIONS (2)
  - Terminal state [Fatal]
  - Off label use [Unknown]

NARRATIVE: CASE EVENT DATE: 201609
